FAERS Safety Report 21141997 (Version 3)
Quarter: 2022Q3

REPORT INFORMATION
  Report Type: Spontaneous
  Country: JP (occurrence: JP)
  Receive Date: 20220728
  Receipt Date: 20220815
  Transmission Date: 20221027
  Serious: Yes (Other)
  Sender: FDA-Public Use
  Company Number: JP-PFIZER INC-202101276101

PATIENT
  Age: 77 Year
  Sex: Female
  Weight: 40.3 kg

DRUGS (1)
  1. METHOTREXATE SODIUM [Suspect]
     Active Substance: METHOTREXATE SODIUM
     Indication: Rheumatoid arthritis
     Dosage: (4MG ON SUNDAYS AND MONDAYS) FOR MORE THAN 20 YEARS
     Route: 048
     Dates: end: 201811

REACTIONS (2)
  - Diffuse large B-cell lymphoma stage IV [Recovered/Resolved]
  - Epstein-Barr virus associated lymphoproliferative disorder [Recovered/Resolved]

NARRATIVE: CASE EVENT DATE: 20181101
